FAERS Safety Report 23841958 (Version 1)
Quarter: 2024Q2

REPORT INFORMATION
  Report Type: Spontaneous
  Country: JP (occurrence: JP)
  Receive Date: 20240510
  Receipt Date: 20240510
  Transmission Date: 20240716
  Serious: Yes (Other)
  Sender: FDA-Public Use
  Company Number: JP-MYLANLABS-2024M1041688

PATIENT
  Age: 10 Decade
  Sex: Male
  Weight: 52 kg

DRUGS (6)
  1. AMLODIPINE [Interacting]
     Active Substance: AMLODIPINE BESYLATE
     Indication: Hypertension
     Dosage: UNK
     Route: 065
  2. DAPSONE [Interacting]
     Active Substance: DAPSONE
     Indication: Dermatitis exfoliative generalised
     Dosage: 50 MILLIGRAM, QD
     Route: 065
  3. SUVOREXANT [Interacting]
     Active Substance: SUVOREXANT
     Indication: Insomnia
     Dosage: UNK
     Route: 065
  4. CANDESARTAN CILEXETIL [Interacting]
     Active Substance: CANDESARTAN CILEXETIL
     Indication: Hypertension
     Dosage: UNK
     Route: 065
  5. BEPOTASTINE [Interacting]
     Active Substance: BEPOTASTINE
     Indication: Erythema
     Dosage: UNK
     Route: 065
  6. LEVOCETIRIZINE [Concomitant]
     Active Substance: LEVOCETIRIZINE
     Indication: Erythema
     Dosage: UNK
     Route: 065

REACTIONS (3)
  - Haemolytic anaemia [Recovering/Resolving]
  - Anaemia Heinz body [Recovering/Resolving]
  - Drug interaction [Recovering/Resolving]
